FAERS Safety Report 8786030 (Version 1)
Quarter: 2012Q4

REPORT INFORMATION
  Report Type: 
  Country: US (occurrence: US)
  Receive Date: 20120914
  Receipt Date: 20120914
  Transmission Date: 20130627
  Serious: Yes (Death)
  Sender: FDA-Public Use
  Company Number: US-ROCHE-1126526

PATIENT
  Sex: Female

DRUGS (1)
  1. AVASTIN [Suspect]
     Indication: PANCREATIC CARCINOMA
     Dosage: dose taken on 15/Mar/2004 and 30/Mar/2004
     Route: 065

REACTIONS (1)
  - Death [Fatal]
